FAERS Safety Report 19008537 (Version 2)
Quarter: 2021Q2

REPORT INFORMATION
  Report Type: Spontaneous
  Country: US (occurrence: US)
  Receive Date: 20210316
  Receipt Date: 20210412
  Transmission Date: 20210717
  Serious: No
  Sender: FDA-Public Use
  Company Number: US-JNJFOC-20210319077

PATIENT
  Age: 50 Year
  Sex: Male

DRUGS (2)
  1. 6 MP [Concomitant]
     Active Substance: MERCAPTOPURINE
     Indication: COLITIS
     Dates: start: 2001
  2. REMICADE [Suspect]
     Active Substance: INFLIXIMAB
     Indication: INFLAMMATORY BOWEL DISEASE
     Route: 042
     Dates: start: 2014

REACTIONS (4)
  - Drug level decreased [Unknown]
  - Blister [Not Recovered/Not Resolved]
  - Psoriasis [Not Recovered/Not Resolved]
  - Eczema [Not Recovered/Not Resolved]

NARRATIVE: CASE EVENT DATE: 2016
